FAERS Safety Report 5602760-0 (Version None)
Quarter: 2008Q1

REPORT INFORMATION
  Report Type: 
  Country: None (occurrence: None)
  Receive Date: 20080125
  Receipt Date: 20080117
  Transmission Date: 20080703
  Serious: Yes (Death, Hospitalization, Other)
  Sender: FDA-Public Use
  Company Number: US-BRISTOL-MYERS SQUIBB COMPANY-14016141

PATIENT
  Age: 60 Year
  Sex: Female

DRUGS (7)
  1. IXEMPRA [Suspect]
     Indication: BREAST CANCER METASTATIC
     Route: 042
     Dates: start: 20071102
  2. XELODA [Suspect]
     Indication: BREAST CANCER METASTATIC
     Route: 048
  3. ALOXI [Concomitant]
  4. DECADRON [Concomitant]
  5. ZANTAC [Concomitant]
     Route: 042
  6. ZANTAC [Concomitant]
     Route: 042
  7. BENADRYL [Concomitant]
     Route: 042

REACTIONS (4)
  - DYSPNOEA [None]
  - PANCYTOPENIA [None]
  - PULMONARY TOXICITY [None]
  - RESPIRATORY ARREST [None]
